FAERS Safety Report 8976303 (Version 1)
Quarter: 2012Q4

REPORT INFORMATION
  Report Type: Report from Study
  Country: US (occurrence: US)
  Receive Date: 20121220
  Receipt Date: 20121220
  Transmission Date: 20130627
  Serious: Yes (Hospitalization, Other)
  Sender: FDA-Public Use
  Company Number: US-PFIZER INC-2012320173

PATIENT
  Age: 23 Year
  Sex: Female

DRUGS (30)
  1. MS CONTIN [Suspect]
     Indication: RHEUMATOID ARTHRITIS
     Dosage: 1-4,15 mg tablets every 4 days
     Route: 048
  2. MS CONTIN [Suspect]
     Dosage: 30 mg, daily
     Route: 048
     Dates: start: 20081016
  3. MS CONTIN [Suspect]
     Dosage: 400 mg, daily
     Route: 048
     Dates: start: 200908
  4. METHOTREXATE SODIUM [Suspect]
     Dosage: 0.6 ml, UNK
     Route: 065
  5. METHOTREXATE SODIUM [Suspect]
     Dosage: 50 mg, weekly
     Route: 065
  6. METHOTREXATE SODIUM [Suspect]
     Dosage: 15 mg, UNK
     Dates: start: 200706
  7. DILAUDID [Suspect]
     Dosage: 4 mg, 4x/day
     Route: 065
  8. DILAUDID [Suspect]
     Dosage: 16 mg, daily
     Route: 065
     Dates: start: 200807
  9. DILAUDID [Suspect]
     Dosage: 32 mg, daily
     Route: 065
     Dates: start: 200810
  10. BLINDED THERAPY [Suspect]
     Indication: RHEUMATOID ARTHRITIS
     Dosage: UNK
     Route: 042
     Dates: start: 20080918
  11. BLINDED THERAPY [Suspect]
     Dosage: UNK
     Dates: start: 20081001
  12. BLINDED THERAPY [Suspect]
     Dosage: UNK
     Route: 042
     Dates: start: 20090413
  13. BLINDED THERAPY [Suspect]
     Dosage: UNK
     Route: 042
     Dates: start: 20090427
  14. BLINDED THERAPY [Suspect]
     Dosage: UNK
     Route: 042
     Dates: start: 20090901
  15. BLINDED THERAPY [Suspect]
     Dosage: UNK
     Route: 042
     Dates: start: 20090915
  16. BLINDED THERAPY [Suspect]
     Dosage: UNK
     Route: 042
     Dates: start: 20091001
  17. BLINDED THERAPY [Suspect]
     Dosage: UNK
     Route: 042
     Dates: start: 20091016
  18. BLINDED THERAPY [Suspect]
     Dosage: UNK
     Route: 042
     Dates: start: 20090901
  19. BLINDED THERAPY [Suspect]
     Dosage: UNK
     Route: 042
     Dates: start: 20090915
  20. BLINDED THERAPY [Suspect]
     Dosage: UNK
     Route: 042
     Dates: start: 20091123
  21. BLINDED THERAPY [Suspect]
     Dosage: UNK
     Route: 042
     Dates: start: 20091207
  22. FLEXERIL [Concomitant]
     Dosage: UNK
     Dates: start: 20090202
  23. CITALOPRAM [Concomitant]
     Dosage: UNK
  24. PREDNISONE [Concomitant]
     Dosage: UNK
     Dates: start: 200703
  25. LISINOPRIL [Concomitant]
     Dosage: UNK
  26. LOESTRIN [Concomitant]
     Dosage: UNK
  27. PREVACID [Concomitant]
     Dosage: UNK
     Dates: start: 200804
  28. NOVOLOG [Concomitant]
     Dosage: UNK
     Dates: start: 199804
  29. PHENERGAN [Concomitant]
     Dosage: UNK
  30. LIDODERM [Concomitant]
     Dosage: UNK
     Dates: start: 20090202

REACTIONS (10)
  - Drug withdrawal syndrome [Unknown]
  - Diabetic ketoacidosis [Recovered/Resolved]
  - Incorrect dose administered [Unknown]
  - Joint swelling [Unknown]
  - Pain in extremity [Unknown]
  - Sensation of heaviness [Unknown]
  - Upper respiratory tract infection [Unknown]
  - Inadequate analgesia [Unknown]
  - Oedema peripheral [Unknown]
  - Gastroenteritis [Unknown]
